FAERS Safety Report 5131615-3 (Version None)
Quarter: 2006Q4

REPORT INFORMATION
  Report Type: 
  Country: None (occurrence: None)
  Receive Date: 20061020
  Receipt Date: 20061013
  Transmission Date: 20070319
  Serious: Yes (Hospitalization)
  Sender: FDA-Public Use
  Company Number: DE-SANOFI-SYNTHELABO-F04200600211

PATIENT
  Sex: Female

DRUGS (2)
  1. CAPECITABINE [Suspect]
     Indication: METASTATIC NEOPLASM
     Route: 048
     Dates: start: 20060830
  2. ELOXATIN [Suspect]
     Indication: METASTATIC NEOPLASM
     Route: 041
     Dates: start: 20060830, end: 20060830

REACTIONS (4)
  - CONTUSION [None]
  - FALL [None]
  - ORTHOSTATIC HYPOTENSION [None]
  - SYNCOPE [None]
